FAERS Safety Report 6275689-5 (Version None)
Quarter: 2009Q3

REPORT INFORMATION
  Report Type: 
  Country: None (occurrence: None)
  Receive Date: 20090721
  Receipt Date: 20090708
  Transmission Date: 20100115
  Serious: Yes (Other)
  Sender: FDA-Public Use
  Company Number: PHHY2009IS26745

PATIENT
  Sex: Male

DRUGS (2)
  1. GLEEVEC [Suspect]
     Indication: CHRONIC MYELOID LEUKAEMIA
     Dosage: 400 MG, UNK
     Dates: start: 20090109
  2. GLEEVEC [Suspect]
     Dosage: 200 MG, UNK

REACTIONS (3)
  - BONE MARROW DISORDER [None]
  - COLLAGEN DISORDER [None]
  - RETICULIN INCREASED [None]
